FAERS Safety Report 8398508-X (Version None)
Quarter: 2012Q2

REPORT INFORMATION
  Report Type: 
  Country: None (occurrence: None)
  Receive Date: 20120531
  Receipt Date: 20120521
  Transmission Date: 20120825
  Serious: Yes (Death, Hospitalization)
  Sender: FDA-Public Use
  Company Number: DE-ALEXION-A201101819

PATIENT
  Sex: Male

DRUGS (3)
  1. LITHIUM CARBONATE [Concomitant]
     Dosage: 225-0-450MG
  2. SOLIRIS [Suspect]
     Indication: PAROXYSMAL NOCTURNAL HAEMOGLOBINURIA
     Dosage: UNK
     Route: 042
     Dates: start: 20091101
  3. QUETIAPINE [Concomitant]
     Dosage: 300 MG, UNK

REACTIONS (3)
  - FALL [None]
  - DEPRESSION [None]
  - DEATH [None]
